FAERS Safety Report 21822470 (Version 1)
Quarter: 2023Q1

REPORT INFORMATION
  Report Type: Spontaneous
  Country: NO (occurrence: NO)
  Receive Date: 20230105
  Receipt Date: 20230105
  Transmission Date: 20230418
  Serious: Yes (Hospitalization, Other)
  Sender: FDA-Public Use
  Company Number: NO-NAARI PTE LIMITED-2023NP000001

PATIENT
  Age: 3 Decade
  Sex: Female

DRUGS (2)
  1. MISOPROSTOL [Suspect]
     Active Substance: MISOPROSTOL
     Indication: Labour induction
     Dosage: UNK, TABLET, 25 MICROGRAM, RECEIVED FOUR TABLETS WITH TWO HOURS APART
     Route: 048
  2. ATOSIBAN [Suspect]
     Active Substance: ATOSIBAN
     Indication: Arrested labour
     Dosage: 6.75 MILLIGRAM, UNKNOWN
     Route: 042

REACTIONS (2)
  - Uterine rupture [Unknown]
  - Exposure during pregnancy [Unknown]
